FAERS Safety Report 6189263-2 (Version None)
Quarter: 2009Q2

REPORT INFORMATION
  Report Type: 
  Country: None (occurrence: None)
  Receive Date: 20090512
  Receipt Date: 20090505
  Transmission Date: 20091009
  Serious: Yes (Hospitalization)
  Sender: FDA-Public Use
  Company Number: 2009SP004420

PATIENT
  Age: 53 Year
  Sex: Male

DRUGS (3)
  1. PEG-INTRON [Suspect]
     Indication: HEPATITIS C
     Dosage: 120 MCG; ; SC
     Route: 058
     Dates: start: 20081112, end: 20090301
  2. RIBASPHERE [Suspect]
     Indication: HEPATITIS C
     Dates: start: 20081112
  3. ALCOHOL [Suspect]
     Indication: DRUG USE FOR UNKNOWN INDICATION

REACTIONS (8)
  - ANGER [None]
  - DEPRESSION [None]
  - DRUG DELIVERY SYSTEM MALFUNCTION [None]
  - GASTROOESOPHAGEAL REFLUX DISEASE [None]
  - INAPPROPRIATE SCHEDULE OF DRUG ADMINISTRATION [None]
  - NAUSEA [None]
  - OESOPHAGITIS ULCERATIVE [None]
  - VOMITING [None]
